FAERS Safety Report 21964989 (Version 1)
Quarter: 2023Q1

REPORT INFORMATION
  Report Type: Spontaneous
  Country: KR (occurrence: KR)
  Receive Date: 20230207
  Receipt Date: 20230207
  Transmission Date: 20230417
  Serious: Yes (Hospitalization)
  Sender: FDA-Public Use
  Company Number: KR-ABBOTT-2023A-1359063

PATIENT
  Age: 45 Year
  Sex: Male

DRUGS (1)
  1. FENOFIBRATE [Suspect]
     Active Substance: FENOFIBRATE
     Indication: Hyperlipidaemia
     Route: 048
     Dates: start: 20181001, end: 20190502

REACTIONS (3)
  - Blood creatine phosphokinase increased [Recovered/Resolved]
  - Hepatic enzyme increased [Recovered/Resolved]
  - Myoglobinuria [Recovered/Resolved]

NARRATIVE: CASE EVENT DATE: 20190430
